FAERS Safety Report 5705912-4 (Version None)
Quarter: 2008Q2

REPORT INFORMATION
  Report Type: 
  Country: None (occurrence: None)
  Receive Date: 20080411
  Receipt Date: 20080326
  Transmission Date: 20081010
  Serious: Yes (Hospitalization, Other)
  Sender: FDA-Public Use
  Company Number: S08-NOR-01144-01

PATIENT
  Age: 20 Year
  Sex: Female

DRUGS (3)
  1. CIPRAMIL (CITALOPRAM HXDROBROMIDE) [Suspect]
     Indication: DEPRESSION
     Dosage: 20 MG QD PO
     Route: 048
     Dates: start: 19981120, end: 19990601
  2. TRINORDIOL (EUGYNON) [Suspect]
     Indication: CONTRACEPTION
  3. IMOVANE (ZOPICLONE) [Concomitant]

REACTIONS (10)
  - ABNORMAL BEHAVIOUR [None]
  - ANXIETY [None]
  - DEPRESSION [None]
  - DRUG ABUSE [None]
  - DRUG INTOLERANCE [None]
  - MENTAL DISORDER [None]
  - POISONING [None]
  - PSYCHOTIC DISORDER [None]
  - SCHIZOID PERSONALITY DISORDER [None]
  - SOCIAL PHOBIA [None]
